FAERS Safety Report 8216569-5 (Version None)
Quarter: 2012Q1

REPORT INFORMATION
  Report Type: 
  Country: None (occurrence: None)
  Receive Date: 20120316
  Receipt Date: 20120309
  Transmission Date: 20120608
  Serious: Yes (Hospitalization)
  Sender: FDA-Public Use
  Company Number: PHHY2012GB020639

PATIENT
  Age: 28 Year
  Sex: Female
  Weight: 70 kg

DRUGS (1)
  1. DOXYCYCLINE [Suspect]
     Route: 048

REACTIONS (2)
  - BURN OESOPHAGEAL [None]
  - FOREIGN BODY [None]
